FAERS Safety Report 12080282 (Version 3)
Quarter: 2016Q1

REPORT INFORMATION
  Report Type: Spontaneous
  Country: FR (occurrence: FR)
  Receive Date: 20160216
  Receipt Date: 20160316
  Transmission Date: 20160526
  Serious: Yes (Hospitalization)
  Sender: FDA-Public Use
  Company Number: FR-PFIZER INC-2016079925

PATIENT
  Age: 74 Year
  Sex: Male

DRUGS (7)
  1. LYRICA [Interacting]
     Active Substance: PREGABALIN
     Dosage: 25 MG, 2X/DAY
     Route: 048
     Dates: start: 20160115, end: 20160116
  2. LYRICA [Suspect]
     Active Substance: PREGABALIN
     Dosage: 25 MG, DAILY
     Route: 048
     Dates: start: 20160115
  3. ZELITREX [Concomitant]
     Active Substance: VALACYCLOVIR HYDROCHLORIDE
     Indication: HERPES ZOSTER
     Dosage: UNK
  4. ABSTRAL [Interacting]
     Active Substance: FENTANYL CITRATE
     Indication: HERPES ZOSTER
     Dosage: 100 UG, AS NEEDED
     Route: 048
     Dates: start: 201601, end: 20160127
  5. LYRICA [Interacting]
     Active Substance: PREGABALIN
     Dosage: 50 MG, 1X/DAY IN THE EVENING
     Dates: start: 20160122, end: 20160127
  6. CISPLATIN. [Concomitant]
     Active Substance: CISPLATIN
     Dosage: UNK
     Dates: start: 20160115
  7. GEMZAR [Concomitant]
     Active Substance: GEMCITABINE HYDROCHLORIDE
     Dosage: UNK
     Dates: start: 20160115

REACTIONS (3)
  - Drug interaction [Recovered/Resolved]
  - Hallucination [Recovered/Resolved]
  - Confusional state [Recovered/Resolved]

NARRATIVE: CASE EVENT DATE: 20160119
